FAERS Safety Report 24772428 (Version 1)
Quarter: 2024Q4

REPORT INFORMATION
  Report Type: Report from Study
  Country: NL (occurrence: NL)
  Receive Date: 20241224
  Receipt Date: 20241224
  Transmission Date: 20250115
  Serious: Yes (Other)
  Sender: ABBVIE
  Company Number: NL-ABBVIE-6061619

PATIENT
  Age: 62 Year
  Sex: Female

DRUGS (4)
  1. FOSCARBIDOPA\FOSLEVODOPA [Suspect]
     Active Substance: FOSCARBIDOPA\FOSLEVODOPA
     Indication: Parkinson^s disease
     Route: 058
     Dates: start: 20241119
  2. FOSCARBIDOPA\FOSLEVODOPA [Suspect]
     Active Substance: FOSCARBIDOPA\FOSLEVODOPA
     Dosage: LOADING DOSE (ML) 0.00, ?BASE INFUSION RATE (ML/H) 0.15?LOW INFUSION RATE (ML/H) 0.15?TOTAL LEVOD...
     Route: 058
     Dates: start: 20241119, end: 20241120
  3. FOSCARBIDOPA\FOSLEVODOPA [Suspect]
     Active Substance: FOSCARBIDOPA\FOSLEVODOPA
     Dosage: LOADING DOSE (ML) 0.00, ?BASE INFUSION RATE (ML/H) 0.23?LOW INFUSION RATE (ML/H) 0.15?TOTAL LEVOD...
     Route: 058
     Dates: start: 20241120, end: 20241120
  4. FOSCARBIDOPA\FOSLEVODOPA [Suspect]
     Active Substance: FOSCARBIDOPA\FOSLEVODOPA
     Dosage: LOADING DOSE (ML) 0.00, ?BASE INFUSION RATE (ML/H) 0.21?LOW INFUSION RATE (ML/H) 0.15?TOTAL LEVOD...
     Route: 058
     Dates: start: 20241120

REACTIONS (6)
  - Heart valve incompetence [Not Recovered/Not Resolved]
  - Dyskinesia [Not Recovered/Not Resolved]
  - On and off phenomenon [Not Recovered/Not Resolved]
  - Device difficult to use [Not Recovered/Not Resolved]
  - Loss of personal independence in daily activities [Not Recovered/Not Resolved]
  - Arthropathy [Not Recovered/Not Resolved]
